FAERS Safety Report 8921980 (Version 1)
Quarter: 2012Q4

REPORT INFORMATION
  Report Type: Spontaneous
  Country: US (occurrence: None)
  Receive Date: 20121109
  Receipt Date: 20121109
  Transmission Date: 20130627
  Serious: Yes (Other)
  Sender: FDA-Public Use
  Company Number: 2012S1000727

PATIENT
  Age: 48 Year
  Sex: Female

DRUGS (4)
  1. CUBICIN [Suspect]
     Indication: SKIN INFECTION
     Dosage: 5 mg/kg; Q48H; IV
     Route: 042
     Dates: start: 20120824
  2. CUBICIN [Suspect]
     Indication: CELLULITIS
     Dosage: 5 mg/kg; Q48H; IV
     Route: 042
     Dates: start: 20120824
  3. COUMADIN [Concomitant]
  4. ASPIRIN [Concomitant]

REACTIONS (3)
  - International normalised ratio increased [None]
  - Off label use [None]
  - Blood creatinine increased [None]
